FAERS Safety Report 6770698-1 (Version None)
Quarter: 2010Q2

REPORT INFORMATION
  Report Type: 
  Country: None (occurrence: None)
  Receive Date: 20100615
  Receipt Date: 20100608
  Transmission Date: 20101027
  Serious: Yes (Hospitalization)
  Sender: FDA-Public Use
  Company Number: PHHO2010GB08684

PATIENT
  Sex: Female

DRUGS (2)
  1. ERL 080A ERL+TAB [Suspect]
     Indication: LUNG TRANSPLANT
     Dosage: 1080 MG, BID
     Route: 048
     Dates: end: 20100427
  2. TACROLIMUS [Concomitant]
     Indication: LUNG TRANSPLANT

REACTIONS (6)
  - BLOOD CALCIUM DECREASED [None]
  - BLOOD MAGNESIUM DECREASED [None]
  - DIARRHOEA [None]
  - IMPAIRED GASTRIC EMPTYING [None]
  - NAUSEA [None]
  - VOMITING [None]
